FAERS Safety Report 10272484 (Version 1)
Quarter: 2014Q1

REPORT INFORMATION
  Report Type: Spontaneous
  Country: US (occurrence: None)
  Receive Date: 20140306
  Receipt Date: 20140306
  Transmission Date: 20141002
  Serious: Yes (Other)
  Sender: FDA-Public Use
  Company Number: 163-21880-13051519

PATIENT
  Age: 48 Year
  Sex: Male

DRUGS (5)
  1. REVLIMID [Suspect]
     Indication: PLASMA CELL MYELOMA
     Dosage: 25 MG, 14 IN 21 D, PO
     Route: 048
     Dates: start: 201304
  2. BONE STRENGTHENING MEDICATION (UNSPECIFIED TRADITIONAL MEDICINE) (UNKNOWN) [Concomitant]
  3. LASIX (FUROSEMIDE) (UNKNOWN) [Concomitant]
  4. POTASSIUM (POTASSIUM) (UNKNOWN) [Concomitant]
  5. BURN MEDICATION (UNSPECIFIED TRADITIONAL MEDICINE) (CREAM) [Concomitant]

REACTIONS (3)
  - Radiation skin injury [None]
  - Local swelling [None]
  - Malaise [None]
